FAERS Safety Report 6599600-2 (Version None)
Quarter: 2010Q1

REPORT INFORMATION
  Report Type: 
  Country: None (occurrence: None)
  Receive Date: 20100224
  Receipt Date: 20100211
  Transmission Date: 20100710
  Serious: No
  Sender: FDA-Public Use
  Company Number: US-JNJFOC-20100206095

PATIENT
  Sex: Female
  Weight: 51.26 kg

DRUGS (2)
  1. FENTANYL-100 [Suspect]
     Indication: PAIN
     Route: 062
  2. TRAMADOL HCL [Concomitant]
     Indication: PAIN
     Dosage: EVERY 4 TO 6 HOURS
     Route: 048

REACTIONS (3)
  - DRUG INEFFECTIVE [None]
  - PYREXIA [None]
  - WRONG TECHNIQUE IN DRUG USAGE PROCESS [None]
